FAERS Safety Report 18637988 (Version 1)
Quarter: 2020Q4

REPORT INFORMATION
  Report Type: Report from Study
  Country: BR (occurrence: BR)
  Receive Date: 20201219
  Receipt Date: 20201219
  Transmission Date: 20210114
  Serious: Yes (Other)
  Sender: FDA-Public Use
  Company Number: BR-UCBSA-2020052078

PATIENT
  Sex: Female
  Weight: 75 kg

DRUGS (2)
  1. CERTOLIZUMAB PEGOL [Suspect]
     Active Substance: CERTOLIZUMAB PEGOL
     Indication: RHEUMATOID ARTHRITIS
     Dosage: UNK
     Route: 058
  2. CORUS [LOSARTAN POTASSIUM] [Concomitant]
     Indication: HYPERTENSION

REACTIONS (4)
  - Hypertension [Unknown]
  - Therapy cessation [Unknown]
  - Product availability issue [Unknown]
  - Foot deformity [Unknown]
